FAERS Safety Report 5750145-9 (Version None)
Quarter: 2008Q2

REPORT INFORMATION
  Report Type: 
  Country: None (occurrence: None)
  Receive Date: 20080527
  Receipt Date: 20080515
  Transmission Date: 20081010
  Serious: Yes (Other)
  Sender: FDA-Public Use
  Company Number: JP-PFIZER INC-2008040959

PATIENT
  Sex: Female
  Weight: 51 kg

DRUGS (10)
  1. CARDENALIN [Suspect]
     Route: 048
  2. MIGLITOL [Concomitant]
     Route: 048
  3. ACTOS [Concomitant]
     Route: 048
  4. MEVALOTIN [Concomitant]
     Route: 048
  5. OLMETEC [Concomitant]
     Route: 048
  6. AMARYL [Concomitant]
     Route: 048
  7. MELBIN [Concomitant]
     Route: 048
  8. CALBLOCK [Concomitant]
     Route: 048
  9. INSULIN DETEMIR [Concomitant]
     Route: 058
  10. LANTUS [Concomitant]
     Route: 058
     Dates: start: 20080411, end: 20080430

REACTIONS (1)
  - FLOPPY IRIS SYNDROME [None]
